FAERS Safety Report 12764235 (Version 9)
Quarter: 2020Q2

REPORT INFORMATION
  Report Type: Spontaneous
  Country: US (occurrence: US)
  Receive Date: 20160920
  Receipt Date: 20200402
  Transmission Date: 20200713
  Serious: Yes (Hospitalization, Other)
  Sender: FDA-Public Use
  Company Number: US-PFIZER INC-2016437893

PATIENT
  Age: 47 Year
  Sex: Male

DRUGS (2)
  1. DILANTIN [Suspect]
     Active Substance: PHENYTOIN
     Dosage: 4400 MG, WEEKLY (300 MG AM, 400 MG PM AT WEDNESDAYS AND SUNDAYS; 300 MG, TWICE DAILY IN OTHER DAYS)
  2. DILANTIN [Suspect]
     Active Substance: PHENYTOIN
     Indication: SEIZURE
     Dosage: 600 MG, TWICE DAILY (IN THE MORNING AND AT NIGHT)

REACTIONS (2)
  - Drug ineffective [Not Recovered/Not Resolved]
  - Prescribed overdose [Unknown]

NARRATIVE: CASE EVENT DATE: 2016
